FAERS Safety Report 5998577-8 (Version None)
Quarter: 2008Q4

REPORT INFORMATION
  Report Type: 
  Country: None (occurrence: None)
  Receive Date: 20081213
  Receipt Date: 20080711
  Transmission Date: 20090506
  Serious: No
  Sender: FDA-Public Use
  Company Number: US-AMGEN-KDL293941

PATIENT
  Sex: Female

DRUGS (1)
  1. ENBREL [Suspect]
     Indication: ANKYLOSING SPONDYLITIS
     Route: 058
     Dates: start: 20080620

REACTIONS (8)
  - EYE DISCHARGE [None]
  - EYE IRRITATION [None]
  - EYE SWELLING [None]
  - INJECTION SITE URTICARIA [None]
  - NAUSEA [None]
  - NECK PAIN [None]
  - PAIN IN JAW [None]
  - RED BLOOD CELL SEDIMENTATION RATE INCREASED [None]
